FAERS Safety Report 5484843-1 (Version None)
Quarter: 2007Q4

REPORT INFORMATION
  Report Type: 
  Country: None (occurrence: None)
  Receive Date: 20071010
  Receipt Date: 20070912
  Transmission Date: 20080405
  Serious: Yes (Hospitalization)
  Sender: FDA-Public Use
  Company Number: E2090-00305-SPO-JP

PATIENT
  Age: 66 Year
  Sex: Male

DRUGS (10)
  1. ZONISAMIDE [Suspect]
     Indication: EPILEPSY
     Dosage: 300 MG, 1 IN 1 D, ORAL
     Route: 048
     Dates: start: 20070703, end: 20070722
  2. ASPIRIN [Concomitant]
  3. URINORM              (BENZBROMARONE) [Concomitant]
  4. URALYT        (URALYT) [Concomitant]
  5. GRAMALIL               (TIAPRIDE HYDROCHLORIDE) [Concomitant]
  6. MUCOSTA              (REBAMIPIDE) [Concomitant]
  7. LAC-B             (LACTOBACILLUS BIFIDUS, LYOPHILIZED) [Concomitant]
  8. MAGMITT            (MAGNESIUM OXIDE) [Concomitant]
  9. VALPROATE SODIUM [Concomitant]
  10. FAMOTIDINE [Concomitant]

REACTIONS (2)
  - LYMPHOCYTE STIMULATION TEST POSITIVE [None]
  - STEVENS-JOHNSON SYNDROME [None]
